FAERS Safety Report 21299858 (Version 2)
Quarter: 2022Q3

REPORT INFORMATION
  Report Type: Other
  Country: US (occurrence: US)
  Receive Date: 20220906
  Receipt Date: 20220930
  Transmission Date: 20221027
  Serious: Yes (Hospitalization, Other)
  Sender: FDA-Public Use
  Company Number: US-Covis Pharma GmbH-2022COV02671

PATIENT
  Age: 34 Year
  Sex: Female

DRUGS (3)
  1. MAKENA [Suspect]
     Active Substance: HYDROXYPROGESTERONE CAPROATE
     Indication: Premature delivery
     Route: 058
     Dates: start: 20220602, end: 20220826
  2. Vitafol gummies [Concomitant]
     Indication: Pregnancy
     Dosage: 3 TABLETS
     Dates: start: 20220418
  3. FERROUS SULFATE [Concomitant]
     Active Substance: FERROUS SULFATE
     Indication: Anaemia
     Dosage: 1 TABLET
     Dates: start: 20220418

REACTIONS (3)
  - Preterm premature rupture of membranes [Recovered/Resolved]
  - Transverse presentation [Recovered/Resolved]
  - Premature delivery [Recovered/Resolved]

NARRATIVE: CASE EVENT DATE: 20220801
